FAERS Safety Report 20392618 (Version 1)
Quarter: 2022Q1

REPORT INFORMATION
  Report Type: Spontaneous
  Country: US (occurrence: US)
  Receive Date: 20220128
  Receipt Date: 20220128
  Transmission Date: 20220424
  Serious: Yes (Other)
  Sender: FDA-Public Use
  Company Number: US-SA-SAC20220127001396

PATIENT
  Age: 56 Year
  Sex: Male

DRUGS (1)
  1. ZANTAC [Suspect]
     Active Substance: RANITIDINE HYDROCHLORIDE
     Indication: Dyspepsia
     Dosage: 75 MG, QD

REACTIONS (3)
  - Bladder cancer stage I, with cancer in situ [Not Recovered/Not Resolved]
  - Disease progression [Not Recovered/Not Resolved]
  - Renal cancer stage III [Unknown]

NARRATIVE: CASE EVENT DATE: 20181201
